FAERS Safety Report 6951097-6 (Version None)
Quarter: 2010Q3

REPORT INFORMATION
  Report Type: 
  Country: None (occurrence: None)
  Receive Date: 20100828
  Receipt Date: 20100305
  Transmission Date: 20110219
  Serious: No
  Sender: FDA-Public Use
  Company Number: US-ABBOTT-10P-163-0631890-00

PATIENT
  Sex: Male

DRUGS (4)
  1. NIASPAN [Suspect]
     Indication: PRODUCT USED FOR UNKNOWN INDICATION
     Dates: start: 20100101
  2. ASPIRIN [Concomitant]
     Indication: CARDIAC DISORDER
  3. UNKNOWN DIABETES MEDICATION [Concomitant]
     Indication: DIABETES MELLITUS
  4. UNKNOWN HEART MEDICATION [Concomitant]
     Indication: CARDIAC DISORDER

REACTIONS (5)
  - BURNING SENSATION [None]
  - CONFUSIONAL STATE [None]
  - DISORIENTATION [None]
  - ERYTHEMA [None]
  - FALL [None]
